FAERS Safety Report 7191622-6 (Version None)
Quarter: 2010Q4

REPORT INFORMATION
  Report Type: 
  Country: None (occurrence: None)
  Receive Date: 20101223
  Receipt Date: 20101215
  Transmission Date: 20110411
  Serious: Yes (Hospitalization)
  Sender: FDA-Public Use
  Company Number: DE-SANOFI-AVENTIS-2010SA066231

PATIENT
  Age: 89 Year
  Sex: Female
  Weight: 58 kg

DRUGS (5)
  1. DRONEDARONE [Suspect]
     Indication: VENTRICULAR FIBRILLATION
     Route: 048
     Dates: start: 20100730, end: 20100813
  2. DRONEDARONE [Suspect]
     Indication: ATRIAL FIBRILLATION
     Route: 048
     Dates: start: 20100730, end: 20100813
  3. BETA BLOCKING AGENTS [Concomitant]
     Dosage: IN THE COURSE THE DOSE WAS INCREASED
     Route: 048
     Dates: start: 20100727
  4. AMIODARONE HCL [Concomitant]
     Route: 065
     Dates: start: 20100727
  5. LEVOTHYROXINE SODIUM [Concomitant]
     Route: 048
     Dates: end: 20100701

REACTIONS (6)
  - APHASIA [None]
  - BALANCE DISORDER [None]
  - BEDRIDDEN [None]
  - CONFUSIONAL STATE [None]
  - DISORIENTATION [None]
  - HEMIPARESIS [None]
